FAERS Safety Report 9490575 (Version 2)
Quarter: 2014Q2

REPORT INFORMATION
  Report Type: Report from Study
  Country: JP (occurrence: JP)
  Receive Date: 20130830
  Receipt Date: 20140415
  Transmission Date: 20141212
  Serious: Yes (Death, Other)
  Sender: FDA-Public Use
  Company Number: JP-ROCHE-1265766

PATIENT
  Age: 77 Year
  Sex: Female
  Weight: 40 kg

DRUGS (7)
  1. TOCILIZUMAB [Suspect]
     Indication: RHEUMATOID ARTHRITIS
     Route: 041
     Dates: start: 20120626, end: 20120823
  2. METHOTREXATE [Suspect]
     Indication: RHEUMATOID ARTHRITIS
     Route: 048
     Dates: start: 20120921
  3. BONOTEO [Suspect]
     Indication: RHEUMATOID ARTHRITIS
     Dosage: DOSAGE IS UNCERTAIN.
     Route: 048
     Dates: end: 20120921
  4. KENACORT [Suspect]
     Indication: RHEUMATOID ARTHRITIS
     Dosage: 15MG A MONTH
     Route: 014
  5. FOLIAMIN [Concomitant]
     Indication: PROPHYLAXIS
     Dosage: DOSAGE IS UNCERTAIN.
     Route: 048
     Dates: end: 20120921
  6. CRESTOR [Concomitant]
     Dosage: DOSAGE IS UNCERTAIN.
     Route: 048
     Dates: end: 20120921
  7. THYRADIN [Concomitant]
     Indication: THYROID DISORDER
     Dosage: DOSAGE IS UNCERTAIN.
     Route: 048

REACTIONS (5)
  - Sepsis [Fatal]
  - Aortic rupture [Fatal]
  - Retroperitoneal abscess [Fatal]
  - Osteomyelitis [Not Recovered/Not Resolved]
  - Gastrointestinal perforation [Unknown]
